FAERS Safety Report 19665079 (Version 3)
Quarter: 2022Q2

REPORT INFORMATION
  Report Type: Spontaneous
  Country: DE (occurrence: DE)
  Receive Date: 20210806
  Receipt Date: 20220613
  Transmission Date: 20220720
  Serious: Yes (Other)
  Sender: FDA-Public Use
  Company Number: DE-CELLTRION INC.-2021DE010184

PATIENT

DRUGS (1)
  1. RITUXIMAB [Suspect]
     Active Substance: RITUXIMAB
     Indication: Ocular lymphoma
     Dosage: 1 GM IN 0.1 ML (DOSE FORM:INJECTION)
     Route: 050

REACTIONS (3)
  - Cataract [Unknown]
  - Off label use [Unknown]
  - Off label use [Unknown]
